FAERS Safety Report 5004386-9 (Version None)
Quarter: 2006Q2

REPORT INFORMATION
  Report Type: 
  Country: None (occurrence: None)
  Receive Date: 20060511
  Receipt Date: 20060428
  Transmission Date: 20061013
  Serious: Yes (Other)
  Sender: FDA-Public Use
  Company Number: HQWYE105502MAY06

PATIENT
  Sex: Female

DRUGS (3)
  1. PREMARIN [Suspect]
  2. PREMPRO [Suspect]
  3. PROVERA [Suspect]

REACTIONS (1)
  - BREAST CANCER FEMALE [None]
